FAERS Safety Report 9999303 (Version 1)
Quarter: 2014Q1

REPORT INFORMATION
  Report Type: Spontaneous
  Country: US (occurrence: None)
  Receive Date: 20140311
  Receipt Date: 20140311
  Transmission Date: 20141002
  Serious: Yes (Hospitalization)
  Sender: FDA-Public Use
  Company Number: None

PATIENT
  Age: 74 Year
  Sex: Male
  Weight: 108.86 kg

DRUGS (1)
  1. XARELTO 20 MG [Suspect]
     Indication: ATRIAL FIBRILLATION
     Route: 048
     Dates: start: 20140225, end: 20140301

REACTIONS (4)
  - Tongue haemorrhage [None]
  - Tongue disorder [None]
  - Oedema mouth [None]
  - Eye swelling [None]
